FAERS Safety Report 4436153-9 (Version None)
Quarter: 2004Q3

REPORT INFORMATION
  Report Type: 
  Country: None (occurrence: None)
  Receive Date: 20040830
  Receipt Date: 20040823
  Transmission Date: 20050211
  Serious: Yes (Other)
  Sender: FDA-Public Use
  Company Number: US-JNJFOC-20040404467

PATIENT
  Sex: Female
  Weight: 56.7 kg

DRUGS (13)
  1. REMICADE [Suspect]
     Indication: RHEUMATOID ARTHRITIS
     Route: 042
  2. METHOTREXATE [Concomitant]
  3. PREDNISONE [Concomitant]
  4. FOLATE [Concomitant]
  5. TOPROL-XL [Concomitant]
  6. SYNTHROID [Concomitant]
  7. DITROPAN [Concomitant]
  8. ESTROGEN [Concomitant]
  9. BETAPACE [Concomitant]
  10. COUMADIN [Concomitant]
  11. PREMARIN [Concomitant]
  12. CALCIUM [Concomitant]
  13. IRON [Concomitant]

REACTIONS (1)
  - CHRONIC LYMPHOCYTIC LEUKAEMIA [None]
